FAERS Safety Report 9921020 (Version 1)
Quarter: 2014Q1

REPORT INFORMATION
  Report Type: Spontaneous
  Country: US (occurrence: US)
  Receive Date: 20140225
  Receipt Date: 20140225
  Transmission Date: 20141002
  Serious: No
  Sender: FDA-Public Use
  Company Number: US-009507513-1402USA008318

PATIENT
  Age: 17 Year
  Sex: Female
  Weight: 74.83 kg

DRUGS (1)
  1. NUVARING [Suspect]
     Indication: HAEMOSTASIS
     Dosage: UNK
     Route: 067
     Dates: start: 20140205

REACTIONS (2)
  - Device expulsion [Unknown]
  - Medication error [Unknown]
